FAERS Safety Report 7331279-4 (Version None)
Quarter: 2011Q1

REPORT INFORMATION
  Report Type: 
  Country: None (occurrence: None)
  Receive Date: 20110223
  Receipt Date: 20110209
  Transmission Date: 20110831
  Serious: Yes (Other)
  Sender: FDA-Public Use
  Company Number: 2011SP006162

PATIENT
  Age: 61 Year
  Sex: Male

DRUGS (3)
  1. INTRON A [Suspect]
     Indication: PRODUCT USED FOR UNKNOWN INDICATION
     Dosage: 3 MIU;TIW;SC
     Route: 058
     Dates: start: 20100520, end: 20100914
  2. CO-RENITEC [Concomitant]
  3. DAFALGAN [Concomitant]

REACTIONS (5)
  - ASTHENIA [None]
  - VISION BLURRED [None]
  - VISUAL ACUITY REDUCED [None]
  - VASCULAR INSUFFICIENCY [None]
  - MACULOPATHY [None]
